FAERS Safety Report 16054466 (Version 1)
Quarter: 2019Q1

REPORT INFORMATION
  Report Type: Spontaneous
  Country: US (occurrence: US)
  Receive Date: 20190309
  Receipt Date: 20190309
  Transmission Date: 20190418
  Serious: Yes (Other)
  Sender: FDA-Public Use
  Company Number: US-TAKEDA-2019TUS012413

PATIENT
  Sex: Male
  Weight: 95.24 kg

DRUGS (6)
  1. METOPROLOL. [Concomitant]
     Active Substance: METOPROLOL
     Indication: ARRHYTHMIA
     Dosage: 12.5 MILLIGRAM, BID
     Route: 065
     Dates: start: 2017
  2. ULORIC [Suspect]
     Active Substance: FEBUXOSTAT
     Indication: GOUT
  3. ULORIC [Suspect]
     Active Substance: FEBUXOSTAT
     Indication: HYPERURICAEMIA
     Dosage: 80 MILLIGRAM, QD
     Route: 065
     Dates: start: 2009
  4. BRILINTA [Suspect]
     Active Substance: TICAGRELOR
     Indication: MYOCARDIAL INFARCTION
     Dosage: UNK
     Route: 065
     Dates: start: 2017, end: 2018
  5. LEVOTHYROXINE. [Concomitant]
     Active Substance: LEVOTHYROXINE
     Indication: HYPOTHYROIDISM
     Dosage: UNK
     Route: 065
     Dates: start: 1986
  6. BABY ASPIRIN [Concomitant]
     Active Substance: ASPIRIN
     Indication: CARDIOVASCULAR EVENT PROPHYLAXIS
     Dosage: UNK
     Route: 065

REACTIONS (4)
  - Renal haemorrhage [Recovered/Resolved]
  - Prostatic operation [Unknown]
  - Renal impairment [Recovered/Resolved]
  - Myocardial infarction [Recovered/Resolved]

NARRATIVE: CASE EVENT DATE: 2017
